FAERS Safety Report 10600559 (Version 2)
Quarter: 2014Q4

REPORT INFORMATION
  Report Type: Spontaneous
  Country: TR (occurrence: TR)
  Receive Date: 20141124
  Receipt Date: 20141223
  Transmission Date: 20150529
  Serious: Yes (Hospitalization)
  Sender: FDA-Public Use
  Company Number: TR-AMGEN-TURSP2014090547

PATIENT
  Age: 76 Year
  Sex: Female

DRUGS (2)
  1. ENBREL [Suspect]
     Active Substance: ETANERCEPT
     Indication: RHEUMATOID ARTHRITIS
     Dosage: 25 MG, 2X/WEEK
     Route: 058
     Dates: start: 20140128, end: 201406
  2. DELTACORTRIL                       /00016201/ [Concomitant]
     Dosage: UNK

REACTIONS (4)
  - Fall [Unknown]
  - Dizziness [Unknown]
  - Cerebral haemorrhage [Unknown]
  - Somnolence [Unknown]

NARRATIVE: CASE EVENT DATE: 20140620
